FAERS Safety Report 4971528-0 (Version None)
Quarter: 2006Q2

REPORT INFORMATION
  Report Type: 
  Country: None (occurrence: None)
  Receive Date: 20060407
  Receipt Date: 20060310
  Transmission Date: 20061013
  Serious: Yes (Hospitalization)
  Sender: FDA-Public Use
  Company Number: 0104-2706

PATIENT

DRUGS (1)
  1. ADVICOR [Suspect]

REACTIONS (1)
  - EOSINOPHILIA [None]
